FAERS Safety Report 20586321 (Version 1)
Quarter: 2022Q1

REPORT INFORMATION
  Report Type: Spontaneous
  Country: US (occurrence: US)
  Receive Date: 20220313
  Receipt Date: 20220313
  Transmission Date: 20220424
  Serious: Yes (Hospitalization, Other)
  Sender: FDA-Public Use
  Company Number: US-TEVA-2022-US-2014895

PATIENT
  Age: 94 Year
  Sex: Female

DRUGS (7)
  1. TRAMADOL HYDROCHLORIDE [Suspect]
     Active Substance: TRAMADOL HYDROCHLORIDE
     Indication: Pain
     Dosage: 150 MILLIGRAM DAILY; APPROXIMATELY 2019 OR 2020 (^ABOUT 2 TO 3 YEARS AGO^)
     Route: 065
  2. GABAPENTIN [Concomitant]
     Active Substance: GABAPENTIN
     Indication: Thrombosis
  3. BRILINTA [Concomitant]
     Active Substance: TICAGRELOR
     Indication: Thrombosis
  4. BISACODYL [Concomitant]
     Active Substance: BISACODYL
  5. FERROUS FUMARATE [Concomitant]
     Active Substance: FERROUS FUMARATE
  6. OXYCODONE [Concomitant]
     Active Substance: OXYCODONE
  7. NORCO [Concomitant]
     Active Substance: ACETAMINOPHEN\HYDROCODONE BITARTRATE

REACTIONS (12)
  - Haemorrhage [Unknown]
  - Cardiovascular insufficiency [Not Recovered/Not Resolved]
  - Dementia [Unknown]
  - Paraesthesia [Not Recovered/Not Resolved]
  - Hypoaesthesia [Not Recovered/Not Resolved]
  - Fall [Recovered/Resolved]
  - Foot fracture [Unknown]
  - Adverse drug reaction [Unknown]
  - Drug withdrawal syndrome [Not Recovered/Not Resolved]
  - Irritability [Unknown]
  - Depersonalisation/derealisation disorder [Unknown]
  - Palpitations [Unknown]

NARRATIVE: CASE EVENT DATE: 20220217
